FAERS Safety Report 12631139 (Version 2)
Quarter: 2016Q3

REPORT INFORMATION
  Report Type: Spontaneous
  Country: US (occurrence: US)
  Receive Date: 20160808
  Receipt Date: 20160808
  Transmission Date: 20161109
  Serious: No
  Sender: FDA-Public Use
  Company Number: US-BEH-2015052456

PATIENT
  Sex: Female
  Weight: 66 kg

DRUGS (23)
  1. DIPHENHYDRAMINE. [Concomitant]
     Active Substance: DIPHENHYDRAMINE
     Indication: ANAPHYLACTIC REACTION
  2. BUDESONIDE. [Concomitant]
     Active Substance: BUDESONIDE
  3. PROAIR HFA [Concomitant]
     Active Substance: ALBUTEROL SULFATE
  4. MIRALAX [Concomitant]
     Active Substance: POLYETHYLENE GLYCOL 3350
  5. LIDOCAINE. [Concomitant]
     Active Substance: LIDOCAINE
  6. METHOCARBAMOL. [Concomitant]
     Active Substance: METHOCARBAMOL
  7. DULCOLAX NOS [Concomitant]
     Active Substance: BISACODYL OR DOCUSATE SODIUM
  8. VICODIN [Concomitant]
     Active Substance: ACETAMINOPHEN\HYDROCODONE BITARTRATE
  9. HIZENTRA [Suspect]
     Active Substance: HUMAN IMMUNOGLOBULIN G
     Indication: IMMUNODEFICIENCY COMMON VARIABLE
     Dosage: 4 GM 20 ML VIAL
     Route: 058
  10. LEVAQUIN [Concomitant]
     Active Substance: LEVOFLOXACIN
  11. LANTUS [Concomitant]
     Active Substance: INSULIN GLARGINE
  12. PANTOPRAZOLE [Concomitant]
     Active Substance: PANTOPRAZOLE SODIUM
  13. CHLORPHENIRAMINE. [Concomitant]
     Active Substance: CHLORPHENIRAMINE
  14. PREDNISONE. [Concomitant]
     Active Substance: PREDNISONE
  15. LISINOPRIL. [Concomitant]
     Active Substance: LISINOPRIL
  16. FLONASE [Concomitant]
     Active Substance: FLUTICASONE PROPIONATE
  17. ASPIRIN. [Concomitant]
     Active Substance: ASPIRIN
  18. CITRACAL [Concomitant]
     Active Substance: CALCIUM CITRATE
  19. ALBUTEROL. [Concomitant]
     Active Substance: ALBUTEROL
  20. EPIPEN [Concomitant]
     Active Substance: EPINEPHRINE
     Indication: ANAPHYLACTIC REACTION
  21. LUMIGAN [Concomitant]
     Active Substance: BIMATOPROST
  22. CLOTRIMAZOLE. [Concomitant]
     Active Substance: CLOTRIMAZOLE
  23. AFRIN [Concomitant]
     Active Substance: OXYMETAZOLINE

REACTIONS (1)
  - Fatigue [Unknown]
